FAERS Safety Report 9838745 (Version 1)
Quarter: 2013Q4

REPORT INFORMATION
  Report Type: Spontaneous
  Country: US (occurrence: None)
  Receive Date: 20131206
  Receipt Date: 20131206
  Transmission Date: 20140711
  Serious: Yes (Hospitalization)
  Sender: FDA-Public Use
  Company Number: 1000046667

PATIENT
  Age: 82 Year
  Sex: Female

DRUGS (10)
  1. NAMENDA [Suspect]
     Indication: DEMENTIA
     Dosage: 1 IN 1 D
     Route: 048
     Dates: start: 20130530, end: 20130605
  2. COUMADIN (WARFARIN) [Concomitant]
  3. GLIPIZIDE (GLIPIZIDE) [Concomitant]
  4. METFORMIN [Concomitant]
  5. ATENOLOL [Concomitant]
  6. CELEBREX [Concomitant]
  7. LASIX (FUROSEMIDE) [Concomitant]
  8. DIGOXIN [Concomitant]
  9. ENALAPRIL [Concomitant]
  10. CRESTOR (ROSUVASTATIN CALCIUM) [Concomitant]

REACTIONS (4)
  - Fall [None]
  - Rib fracture [None]
  - Nausea [None]
  - Abnormal dreams [None]
